FAERS Safety Report 21739651 (Version 1)
Quarter: 2022Q4

REPORT INFORMATION
  Report Type: Spontaneous
  Country: JP (occurrence: JP)
  Receive Date: 20221216
  Receipt Date: 20221216
  Transmission Date: 20230112
  Serious: Yes (Hospitalization)
  Sender: FDA-Public Use
  Company Number: JP-MYLANLABS-2022M1137749

PATIENT
  Age: 63 Year
  Sex: Male
  Weight: 55.3 kg

DRUGS (15)
  1. CARBOPLATIN [Suspect]
     Active Substance: CARBOPLATIN
     Indication: Squamous cell carcinoma of lung
     Dosage: 500 MILLIGRAM X1 DOSE
     Route: 042
     Dates: start: 20220628
  2. KEYTRUDA [Suspect]
     Active Substance: PEMBROLIZUMAB
     Indication: Squamous cell carcinoma of lung
     Dosage: 200 MILLIGRAM X1 DOSE
     Route: 042
     Dates: start: 20220628
  3. ABRAXANE [Suspect]
     Active Substance: PACLITAXEL
     Indication: Squamous cell carcinoma of lung
     Dosage: 120 MILLIGRAM X1 DOSE
     Route: 042
     Dates: start: 20220628, end: 20220705
  4. TELMISARTAN [Concomitant]
     Active Substance: TELMISARTAN
     Indication: Product used for unknown indication
     Dosage: 40 MILLIGRAM, QD, AFTER BREAKFAST (START DATE: BEFORE HOSPITALIZATION)
     Route: 065
     Dates: end: 20220906
  5. VONOPRAZAN FUMARATE [Concomitant]
     Active Substance: VONOPRAZAN FUMARATE
     Indication: Product used for unknown indication
     Dosage: 10 MILLIGRAM, QD, AFTER BREAKFAST (START DATE: BEFORE HOSPITALIZATION)
     Route: 065
  6. BETAMETHASONE [Concomitant]
     Active Substance: BETAMETHASONE
     Indication: Product used for unknown indication
     Dosage: 0.5 MILLIGRAM, QD, AFTER BREAKFAST
     Route: 065
     Dates: start: 20220615, end: 20220715
  7. OXYCODONE HYDROCHLORIDE [Concomitant]
     Active Substance: OXYCODONE HYDROCHLORIDE
     Indication: Product used for unknown indication
     Dosage: 20 MILLIGRAM, BID, 7:00, 19:00
     Route: 065
     Dates: start: 20220615
  8. Oxinorm [Concomitant]
     Indication: Product used for unknown indication
     Dosage: 2.5 MILLIGRAM, PRN, WHEN IT HURTS
     Route: 065
     Dates: start: 20220615
  9. TRICHLORMETHIAZIDE [Concomitant]
     Active Substance: TRICHLORMETHIAZIDE
     Indication: Product used for unknown indication
     Dosage: 1 MILLIGRAM, QD, AFTER BREAKFAST
     Route: 065
     Dates: start: 20220616, end: 20220906
  10. AMLODIPINE [Concomitant]
     Active Substance: AMLODIPINE BESYLATE
     Indication: Product used for unknown indication
     Dosage: 10 MILLIGRAM, QD, AFTER BREAKFAST
     Route: 065
     Dates: start: 20220616
  11. ROSUVASTATIN CALCIUM [Concomitant]
     Active Substance: ROSUVASTATIN CALCIUM
     Indication: Product used for unknown indication
     Dosage: 2.5 MILLIGRAM, QD, AFTER BREAKFAST
     Route: 065
     Dates: start: 20220616
  12. DAYVIGO [Concomitant]
     Active Substance: LEMBOREXANT
     Indication: Product used for unknown indication
     Dosage: 5 MILLIGRAM, QD, BEFORE BEDTIME
     Route: 065
     Dates: start: 20220623
  13. SODIUM CHLORIDE [Concomitant]
     Active Substance: SODIUM CHLORIDE
     Indication: Product used for unknown indication
     Dosage: 3 GRAM, TID, AFTER EACH MEAL
     Route: 065
     Dates: start: 20220701
  14. MAGNESIUM OXIDE [Concomitant]
     Active Substance: MAGNESIUM OXIDE
     Indication: Product used for unknown indication
     Dosage: 1980 MILLIGRAM, TID, AFTER EACH MEAL
     Route: 065
     Dates: start: 20220615
  15. NAPROXEN SODIUM [Concomitant]
     Active Substance: NAPROXEN SODIUM
     Indication: Product used for unknown indication
     Dosage: 600 MILLIGRAM, TID, AFTER EACH MEAL
     Route: 065
     Dates: start: 20220702

REACTIONS (1)
  - Liver disorder [Recovering/Resolving]

NARRATIVE: CASE EVENT DATE: 20220707
